FAERS Safety Report 5147060-0 (Version None)
Quarter: 2006Q4

REPORT INFORMATION
  Report Type: 
  Country: None (occurrence: None)
  Receive Date: 20061109
  Receipt Date: 20060821
  Transmission Date: 20070319
  Serious: Yes (Life-Threatening, Hospitalization)
  Sender: FDA-Public Use
  Company Number: 2006GB01481

PATIENT
  Age: 47 Year
  Sex: Male

DRUGS (12)
  1. ATENOLOL [Interacting]
     Route: 048
  2. OMEPRAZOLE [Interacting]
     Route: 048
  3. AMISULPRIDE [Interacting]
     Route: 048
  4. DOXAZOSIN MESYLATE [Interacting]
     Route: 048
  5. FENTANYL CITRATE [Interacting]
     Route: 061
  6. FENTANYL CITRATE [Interacting]
     Route: 042
  7. HALOPERIDOL [Suspect]
     Route: 065
  8. PANTOPRAZOLE SODIUM [Suspect]
     Route: 042
  9. PROCYCLIDINE HYDROCHLORIDE 2MG TAB [Interacting]
     Route: 048
  10. RIFAMPICIN [Interacting]
     Route: 042
  11. ZOPICLONE [Interacting]
     Route: 065
  12. ZYVOX [Interacting]
     Indication: STAPHYLOCOCCAL INFECTION
     Route: 042
     Dates: start: 20041017, end: 20041020

REACTIONS (2)
  - DRUG INTERACTION [None]
  - HYPERTENSION [None]
